FAERS Safety Report 5311142-0 (Version None)
Quarter: 2007Q2

REPORT INFORMATION
  Report Type: 
  Country: None (occurrence: None)
  Receive Date: 20070430
  Receipt Date: 20070423
  Transmission Date: 20071010
  Serious: Yes (Life-Threatening, Hospitalization)
  Sender: FDA-Public Use
  Company Number: DE-BAYER-200710466BVD

PATIENT
  Age: 71 Year
  Sex: Male
  Weight: 70 kg

DRUGS (6)
  1. SORAFENIB [Suspect]
     Indication: HEPATIC NEOPLASM MALIGNANT
     Route: 048
     Dates: start: 20070301, end: 20070404
  2. METOPROLOL SUCCINATE [Concomitant]
  3. DIBLOCIN [Concomitant]
  4. PANTOZOL 40 [Concomitant]
  5. NORVASC [Concomitant]
  6. ZOCOR [Concomitant]

REACTIONS (3)
  - HAEMOPTYSIS [None]
  - HAEMORRHAGE SUBCUTANEOUS [None]
  - THROMBOCYTOPENIA [None]
